FAERS Safety Report 5532859-9 (Version None)
Quarter: 2007Q4

REPORT INFORMATION
  Report Type: 
  Country: None (occurrence: None)
  Receive Date: 20071129
  Receipt Date: 20071129
  Transmission Date: 20080405
  Serious: Yes (Congenital Anomaly)
  Sender: FDA-Public Use
  Company Number: None

PATIENT

DRUGS (2)
  1. PAROXETINE HCL [Suspect]
     Indication: DEPRESSION
     Dosage: 20 MG; TRANSPLACENTAL
     Route: 064
     Dates: start: 20061101, end: 20070322
  2. AMITRIPTYLINE HCL [Suspect]
     Indication: DEPRESSION
     Dosage: 100 MG; TRANSPLACENTAL
     Route: 064

REACTIONS (4)
  - CONGENITAL ANOMALY [None]
  - DRUG EXPOSURE DURING PREGNANCY [None]
  - DYSMORPHISM [None]
  - POLYDACTYLY [None]
